FAERS Safety Report 7111785-8 (Version None)
Quarter: 2010Q4

REPORT INFORMATION
  Report Type: 
  Country: None (occurrence: None)
  Receive Date: 20101119
  Receipt Date: 20101012
  Transmission Date: 20110411
  Serious: Yes (Life-Threatening)
  Sender: FDA-Public Use
  Company Number: IT-AMGEN-ITASP2010000105

PATIENT

DRUGS (2)
  1. ENBREL [Suspect]
     Route: 058
     Dates: start: 20070918, end: 20100905
  2. ARAVA [Concomitant]
     Dosage: 20 MG EVERY

REACTIONS (1)
  - ERYTHEMA [None]
